FAERS Safety Report 12843039 (Version 2)
Quarter: 2016Q4

REPORT INFORMATION
  Report Type: Spontaneous
  Country: US (occurrence: US)
  Receive Date: 20161013
  Receipt Date: 20161116
  Transmission Date: 20170207
  Serious: No
  Sender: FDA-Public Use
  Company Number: US-ASTRAZENECA-2016SF06437

PATIENT
  Age: 22688 Day
  Sex: Male
  Weight: 127.9 kg

DRUGS (4)
  1. PULMICORT FLEXHALER [Suspect]
     Active Substance: BUDESONIDE
     Indication: ASTHMA
     Route: 055
     Dates: start: 20161003, end: 20161003
  2. PROAIR HFA [Concomitant]
     Active Substance: ALBUTEROL SULFATE
     Indication: ASTHMA
     Dosage: 90.0UG AS REQUIRED
     Route: 055
     Dates: start: 201510
  3. PROAIR HFA [Concomitant]
     Active Substance: ALBUTEROL SULFATE
     Indication: DYSPNOEA
     Dosage: 90.0UG AS REQUIRED
     Route: 055
     Dates: start: 201510
  4. APIRIN [Concomitant]
     Indication: HYPERTENSION
     Route: 048
     Dates: start: 2006

REACTIONS (4)
  - Chest discomfort [Recovered/Resolved]
  - Intentional product misuse [Recovered/Resolved]
  - Circumstance or information capable of leading to medication error [Unknown]
  - Dyspnoea [Recovered/Resolved]

NARRATIVE: CASE EVENT DATE: 20161003
